FAERS Safety Report 9384806 (Version 2)
Quarter: 2013Q4

REPORT INFORMATION
  Report Type: Spontaneous
  Country: US (occurrence: US)
  Receive Date: 20130705
  Receipt Date: 20131009
  Transmission Date: 20140711
  Serious: Yes (Other)
  Sender: FDA-Public Use
  Company Number: US-PFIZER INC-2013197242

PATIENT
  Age: 42 Year
  Sex: Female
  Weight: 60.3 kg

DRUGS (2)
  1. LEVOXYL [Suspect]
     Indication: HYPOTHYROIDISM
     Dosage: 0.125 MG, UNK
  2. CYTOMEL [Concomitant]
     Indication: HYPOTHYROIDISM
     Dosage: 5 UG, 1X/DAY
     Dates: start: 1998

REACTIONS (1)
  - Breast cancer female [Recovered/Resolved]
